FAERS Safety Report 4934088-6 (Version None)
Quarter: 2006Q1

REPORT INFORMATION
  Report Type: 
  Country: None (occurrence: None)
  Receive Date: 20060303
  Receipt Date: 20060221
  Transmission Date: 20060701
  Serious: Yes (Other)
  Sender: FDA-Public Use
  Company Number: 2006026666

PATIENT
  Sex: Female

DRUGS (1)
  1. CLEOCIN [Suspect]
     Indication: ILL-DEFINED DISORDER

REACTIONS (3)
  - DIARRHOEA HAEMORRHAGIC [None]
  - FLATULENCE [None]
  - MUSCLE SPASMS [None]
